FAERS Safety Report 4905119-4 (Version None)
Quarter: 2006Q1

REPORT INFORMATION
  Report Type: 
  Country: None (occurrence: None)
  Receive Date: 20060207
  Receipt Date: 20060207
  Transmission Date: 20060701
  Serious: No
  Sender: FDA-Public Use
  Company Number: None

PATIENT
  Sex: Male
  Weight: 71.67 kg

DRUGS (9)
  1. LAMOTRIGINE [Suspect]
     Indication: CONVULSION
     Dosage: 200 MG   BID   PO
     Route: 048
     Dates: start: 20050808, end: 20060130
  2. ACETAMINOPHEN [Concomitant]
  3. BENZTROPINE MESYLATE [Concomitant]
  4. CLOTRIMAZOLE [Concomitant]
  5. LITHIUM CARBONATE [Concomitant]
  6. OLANZAPINE [Concomitant]
  7. PAROXETINE HCL [Concomitant]
  8. PETINTRON [Concomitant]
  9. RIBIVIRIN [Concomitant]

REACTIONS (1)
  - RASH [None]
